FAERS Safety Report 25134506 (Version 2)
Quarter: 2025Q2

REPORT INFORMATION
  Report Type: Report from Study
  Country: US (occurrence: US)
  Receive Date: 20250328
  Receipt Date: 20250602
  Transmission Date: 20250716
  Serious: Yes (Hospitalization, Other)
  Sender: NOVARTIS
  Company Number: US-002147023-NVSC2025US034382

PATIENT
  Sex: Female

DRUGS (1)
  1. KESIMPTA [Suspect]
     Active Substance: OFATUMUMAB
     Indication: Product used for unknown indication
     Route: 065

REACTIONS (12)
  - Condition aggravated [Unknown]
  - Hemiparesis [Unknown]
  - Pain [Unknown]
  - Chills [Unknown]
  - Depressed mood [Unknown]
  - Pyrexia [Unknown]
  - Dry throat [Unknown]
  - Dyspnoea [Unknown]
  - Malaise [Unknown]
  - Urinary tract infection [Unknown]
  - Central nervous system lesion [Unknown]
  - Insomnia [Unknown]
